FAERS Safety Report 8851727 (Version 1)
Quarter: 2012Q4

REPORT INFORMATION
  Report Type: Spontaneous
  Country: US (occurrence: None)
  Receive Date: 20121018
  Receipt Date: 20121018
  Transmission Date: 20130627
  Serious: Yes (Hospitalization, Other)
  Sender: FDA-Public Use
  Company Number: None

PATIENT
  Age: 40 Year
  Sex: Female
  Weight: 83.92 kg

DRUGS (1)
  1. MIRENA [Suspect]
     Indication: BIRTH CONTROL
     Dosage: levonorgestral-releasing
     Dates: start: 20070227, end: 20090424

REACTIONS (2)
  - Device dislocation [None]
  - Scar [None]
